FAERS Safety Report 24746931 (Version 1)
Quarter: 2024Q4

REPORT INFORMATION
  Report Type: Report from Study
  Country: CA (occurrence: CA)
  Receive Date: 20241218
  Receipt Date: 20241218
  Transmission Date: 20250114
  Serious: Yes (Death, Other)
  Sender: IPSEN BIOPHARMACEUTICALS, INC.
  Company Number: CA-IPSEN Group, Research and Development-2024-25765

PATIENT
  Age: 89 Year
  Sex: Male

DRUGS (13)
  1. LANREOTIDE ACETATE [Suspect]
     Active Substance: LANREOTIDE ACETATE
     Indication: Gastroenteropancreatic neuroendocrine tumour disease
     Dosage: DEEP SUBCUTANEOUS, 120MG/0.5ML
     Route: 058
     Dates: start: 20240517
  2. LATANOPROS/TIMOLOL [Concomitant]
     Dosage: 0.5 + 0.005% 1 DROP OU HSD
  3. VITAMINS [Concomitant]
     Active Substance: VITAMINS
     Dosage: 1 CO DIE EXCEPT THURSDAY
  4. JAMP FER [Concomitant]
     Dosage: 300 MG 1 CO DIE
  5. VITAMIN D3 [Concomitant]
     Active Substance: CHOLECALCIFEROL
     Dosage: 100000 UI 1 CO ON THURSDAY
  6. RAMIPRIL [Concomitant]
     Active Substance: RAMIPRIL
     Dosage: 1 CO DIE
  7. DEXLANSOPRAZOLE [Concomitant]
     Active Substance: DEXLANSOPRAZOLE
     Dosage: 60 MG 1 CO DIE
  8. CREON [Concomitant]
     Active Substance: PANCRELIPASE AMYLASE\PANCRELIPASE LIPASE\PANCRELIPASE PROTEASE
     Dosage: 100000 UNIT, 3 CO TID
  9. RISEDRONATE SODIUM [Concomitant]
     Active Substance: RISEDRONATE SODIUM
     Dosage: 35 MG1 CO DIE
  10. ATORVASTATIN [Concomitant]
     Active Substance: ATORVASTATIN
     Dosage: 10 MG 1 CO DIE
  11. AMLODIPINE [Concomitant]
     Active Substance: AMLODIPINE BESYLATE
     Dosage: 5 MG 1 CO DIE
  12. SITAGLIPTIN METFOR [Concomitant]
     Dosage: 500+50 MG TID
  13. MIRADEGRON [Concomitant]
     Dosage: 50 MG 1 CO HS

REACTIONS (1)
  - Death [Fatal]

NARRATIVE: CASE EVENT DATE: 20241202
